FAERS Safety Report 6366692-5 (Version None)
Quarter: 2009Q3

REPORT INFORMATION
  Report Type: 
  Country: None (occurrence: None)
  Receive Date: 20090821
  Receipt Date: 20090715
  Transmission Date: 20100115
  Serious: No
  Sender: FDA-Public Use
  Company Number: 8049083

PATIENT
  Age: 32 Year
  Sex: Female
  Weight: 112.2 kg

DRUGS (10)
  1. CIMZIA [Suspect]
     Indication: CROHN'S DISEASE
     Dosage: 400 MG SC
     Route: 058
     Dates: start: 20090210
  2. SEROQUEL [Concomitant]
  3. WELCHOL [Concomitant]
  4. DIVALPROEX SODIUM [Concomitant]
  5. MORPHINE SULFATE [Concomitant]
  6. AVINZA [Concomitant]
  7. MORPHINE SILFATE [Concomitant]
  8. AVINZA [Concomitant]
  9. MORPHINE [Concomitant]
  10. LIALDA [Concomitant]

REACTIONS (1)
  - OEDEMA PERIPHERAL [None]
